FAERS Safety Report 11232201 (Version 1)
Quarter: 2015Q3

REPORT INFORMATION
  Report Type: Spontaneous
  Country: CH (occurrence: TR)
  Receive Date: 20150701
  Receipt Date: 20150701
  Transmission Date: 20151125
  Serious: Yes (Hospitalization)
  Sender: FDA-Public Use
  Company Number: CH-LPDUSPRD-20150505

PATIENT
  Age: 37 Year
  Sex: Female

DRUGS (4)
  1. CALCIUM CARBONATE. [Concomitant]
     Active Substance: CALCIUM CARBONATE
     Dosage: DOSE NOT PROVIDED
     Route: 065
     Dates: start: 200212, end: 200212
  2. AMLODIPINE [Concomitant]
     Active Substance: AMLODIPINE BESYLATE
     Dosage: DOSE  NOT PROVIDED
     Route: 065
     Dates: start: 200212, end: 200212
  3. VENOFER [Suspect]
     Active Substance: IRON SUCROSE
     Dosage: 200 MG, 1 IN 1 D
     Route: 042
     Dates: start: 20030105
  4. RHUEPO [Concomitant]
     Dosage: 4000 IU, 2 IN 1 WK
     Route: 058
     Dates: start: 200212

REACTIONS (4)
  - Epistaxis [Unknown]
  - Haematocrit decreased [None]
  - Thrombocytopenia [Recovering/Resolving]
  - Haemoglobin decreased [None]
